FAERS Safety Report 19815297 (Version 1)
Quarter: 2021Q3

REPORT INFORMATION
  Report Type: Spontaneous
  Country: NL (occurrence: NL)
  Receive Date: 20210909
  Receipt Date: 20210909
  Transmission Date: 20211014
  Serious: Yes (Other)
  Sender: FDA-Public Use
  Company Number: NL-PFIZER INC-202101114099

PATIENT
  Age: 59 Year
  Sex: Female
  Weight: 96.4 kg

DRUGS (1)
  1. BEVACIZUMAB. [Suspect]
     Active Substance: BEVACIZUMAB
     Indication: DIABETIC RETINOPATHY
     Dosage: 1 X 2.5 MG = 0.1 ML, INTRAVITREAL
     Route: 050
     Dates: start: 20210811, end: 20210811

REACTIONS (3)
  - Toxic anterior segment syndrome [Recovering/Resolving]
  - Product use issue [Unknown]
  - Off label use [Unknown]

NARRATIVE: CASE EVENT DATE: 20210811
